FAERS Safety Report 4899540-0 (Version None)
Quarter: 2006Q1

REPORT INFORMATION
  Report Type: 
  Country: None (occurrence: None)
  Receive Date: 20060118
  Receipt Date: 20050728
  Transmission Date: 20060701
  Serious: No
  Sender: FDA-Public Use
  Company Number: 2005001453

PATIENT
  Age: 52 Year
  Sex: Male
  Weight: 58.9676 kg

DRUGS (1)
  1. TARCEVA [Suspect]
     Indication: NON-SMALL CELL LUNG CANCER
     Dosage: 150 MG (QD), ORAL
     Route: 048
     Dates: start: 20050720

REACTIONS (5)
  - GLOSSODYNIA [None]
  - NAUSEA [None]
  - RASH [None]
  - TEMPERATURE INTOLERANCE [None]
  - WEIGHT DECREASED [None]
